FAERS Safety Report 12728556 (Version 1)
Quarter: 2016Q3

REPORT INFORMATION
  Report Type: Spontaneous
  Country: US (occurrence: US)
  Receive Date: 20160907
  Receipt Date: 20160907
  Transmission Date: 20161109
  Serious: Yes (Disabling)
  Sender: FDA-Public Use
  Company Number: None

PATIENT
  Age: 53 Year
  Sex: Female
  Weight: 132.75 kg

DRUGS (6)
  1. LEVOFLOXACIN AUROBINDO PHA [Suspect]
     Active Substance: LEVOFLOXACIN
     Indication: DIVERTICULITIS
     Dosage: OTHER STRENGTH:;OTHER DOSE:1 TABLET;OTHER FREQUENCY:;OTHER ROUTE:
     Route: 048
     Dates: start: 20160817, end: 20160830
  2. NEXIUM [Concomitant]
     Active Substance: ESOMEPRAZOLE MAGNESIUM
  3. CALCIUM [Concomitant]
     Active Substance: CALCIUM
  4. VITAMIN C [Concomitant]
     Active Substance: ASCORBIC ACID
  5. TURMERIC [Concomitant]
     Active Substance: TURMERIC
  6. MAGNESIUM GLYCINATE [Concomitant]
     Active Substance: MAGNESIUM GLYCINATE

REACTIONS (11)
  - Joint swelling [None]
  - Pain in extremity [None]
  - Muscle tightness [None]
  - Insomnia [None]
  - Muscular weakness [None]
  - Arthralgia [None]
  - Hypoaesthesia [None]
  - Ligament sprain [None]
  - Myalgia [None]
  - Pain [None]
  - Paraesthesia [None]

NARRATIVE: CASE EVENT DATE: 20160827
